FAERS Safety Report 8701903 (Version 14)
Quarter: 2013Q1

REPORT INFORMATION
  Report Type: Report from Study
  Country: SG (occurrence: SG)
  Receive Date: 20120803
  Receipt Date: 20130225
  Transmission Date: 20140127
  Serious: Yes (Death, Life-Threatening, Hospitalization, Disabling, Other)
  Sender: FDA-Public Use
  Company Number: SG-MPIJNJ-2012-05382

PATIENT
  Sex: 0

DRUGS (11)
  1. VELCADE [Suspect]
     Indication: DIFFUSE LARGE B-CELL LYMPHOMA
     Dosage: UNK MG/M2, UNK
     Route: 037
     Dates: start: 20120621, end: 20120726
  2. VELCADE [Suspect]
     Dosage: UNK
     Route: 037
     Dates: start: 20120731
  3. RITUXIMAB [Suspect]
     Indication: DIFFUSE LARGE B-CELL LYMPHOMA
     Dosage: UNK
     Route: 065
     Dates: start: 20120621, end: 20120726
  4. IFOSFAMIDE [Suspect]
     Indication: DIFFUSE LARGE B-CELL LYMPHOMA
     Dosage: UNK
     Route: 065
     Dates: start: 20120621, end: 20120726
  5. CARBOPLATIN [Suspect]
     Indication: DIFFUSE LARGE B-CELL LYMPHOMA
     Dosage: UNK
     Route: 065
     Dates: start: 20120621, end: 20120726
  6. ETOPOSIDE [Suspect]
     Indication: DIFFUSE LARGE B-CELL LYMPHOMA
     Dosage: UNK
     Route: 065
     Dates: start: 20120621, end: 20120726
  7. ACICLOVIR [Concomitant]
     Dosage: 400 MG, BID
  8. OMEPRAZOLE [Concomitant]
     Dosage: 20 MG, UNK
  9. LAMIVUDINE [Concomitant]
     Dosage: 100 MG, UNK
  10. METHOTREXATE [Concomitant]
     Indication: PROPHYLAXIS
     Route: 037
  11. PENTAMIDINE [Concomitant]
     Indication: PNEUMOCYSTIS JIROVECII PNEUMONIA

REACTIONS (6)
  - Incorrect route of drug administration [Fatal]
  - Demyelination [Unknown]
  - Rhabdomyolysis [Unknown]
  - Tumour lysis syndrome [Unknown]
  - Myalgia [Unknown]
  - Disease progression [Fatal]
